FAERS Safety Report 9216767 (Version 1)
Quarter: 2013Q2

REPORT INFORMATION
  Report Type: Report from Study
  Country: US (occurrence: US)
  Receive Date: 20130408
  Receipt Date: 20130408
  Transmission Date: 20140414
  Serious: Yes (Death, Hospitalization)
  Sender: FDA-Public Use
  Company Number: US-BAYER-2013-041380

PATIENT
  Age: 69 Year
  Sex: Female

DRUGS (1)
  1. NEXAVAR [Suspect]
     Indication: HEPATIC CANCER
     Dosage: 400 MG, BID
     Route: 048
     Dates: start: 20130307, end: 20130312

REACTIONS (7)
  - Death [Fatal]
  - Dehydration [None]
  - Urinary tract infection [None]
  - Renal disorder [None]
  - Constipation [None]
  - Oedema peripheral [None]
  - Thrombosis [None]
